FAERS Safety Report 9047408 (Version 1)
Quarter: 2013Q1

REPORT INFORMATION
  Report Type: Spontaneous
  Country: PR (occurrence: PR)
  Receive Date: 20130201
  Receipt Date: 20130201
  Transmission Date: 20140127
  Serious: No
  Sender: FDA-Public Use
  Company Number: PR-ABBOTT-12P-131-1026478-00

PATIENT
  Sex: Female
  Weight: 129.39 kg

DRUGS (4)
  1. HUMIRA [Suspect]
     Indication: PSORIASIS
     Route: 058
     Dates: start: 201208, end: 201211
  2. GLLPIZIDE [Concomitant]
     Indication: DIABETES MELLITUS
     Route: 048
  3. VASOTEC [Concomitant]
     Indication: HYPERTENSION
     Route: 048
  4. LASIX [Concomitant]
     Indication: HYPERTENSION
     Route: 048

REACTIONS (3)
  - Fatigue [Recovering/Resolving]
  - Asthma [Recovering/Resolving]
  - Nasopharyngitis [Recovering/Resolving]
